FAERS Safety Report 20483611 (Version 2)
Quarter: 2022Q1

REPORT INFORMATION
  Report Type: Spontaneous
  Country: EG (occurrence: EG)
  Receive Date: 20220217
  Receipt Date: 20220301
  Transmission Date: 20220424
  Serious: Yes (Other)
  Sender: FDA-Public Use
  Company Number: EG-NOVOPROD-890541

PATIENT
  Age: 61 Year
  Sex: Female
  Weight: 65 kg

DRUGS (5)
  1. AMBEZIM [Concomitant]
     Indication: Optic nerve disorder
     Dosage: 1 TAB. AS PER NEED
     Route: 048
  2. CEREBROMAP [Concomitant]
     Indication: Optic nerve disorder
     Dosage: 1 CAP./LUNCH
     Route: 048
     Dates: start: 2017
  3. INSULIN HUMAN [Suspect]
     Active Substance: INSULIN HUMAN
     Indication: Diabetes mellitus
     Dosage: 40 IU, QD(30 IU/MORNING AND 10 IU/ NIGHT)
     Route: 058
     Dates: start: 2016
  4. VITAYAMI [Concomitant]
     Indication: Supplementation therapy
     Dosage: 1 TAB./DAY
     Route: 048
     Dates: start: 2000
  5. BIOSTRONG [Concomitant]
     Indication: Supplementation therapy
     Dosage: 1 CAP./DAY
     Route: 048
     Dates: start: 202111

REACTIONS (1)
  - Cataract operation [Not Recovered/Not Resolved]

NARRATIVE: CASE EVENT DATE: 20170101
